FAERS Safety Report 5747516-3 (Version None)
Quarter: 2008Q2

REPORT INFORMATION
  Report Type: 
  Country: None (occurrence: None)
  Receive Date: 20080523
  Receipt Date: 20080520
  Transmission Date: 20081010
  Serious: Yes (Hospitalization, Other)
  Sender: FDA-Public Use
  Company Number: US-ASTRAZENECA-2008UW10293

PATIENT
  Age: 84 Year
  Sex: Female

DRUGS (10)
  1. NEXIUM [Suspect]
     Indication: HIATUS HERNIA
     Route: 048
     Dates: end: 20080501
  2. NEXIUM [Suspect]
     Indication: ULCER
     Route: 048
     Dates: end: 20080501
  3. NEXIUM [Suspect]
     Route: 048
     Dates: start: 20080518
  4. NEXIUM [Suspect]
     Route: 048
     Dates: start: 20080518
  5. ALDACTONE [Concomitant]
  6. LABETALOL HCL [Concomitant]
  7. SYNTHROID [Concomitant]
  8. PRAVACHOL [Concomitant]
  9. DEPAMIDE [Concomitant]
  10. VITAMINS [Concomitant]

REACTIONS (3)
  - ABDOMINAL PAIN [None]
  - HAEMATOCHEZIA [None]
  - HAEMORRHAGE [None]
